FAERS Safety Report 23995259 (Version 1)
Quarter: 2024Q2

REPORT INFORMATION
  Report Type: Spontaneous
  Country: PL (occurrence: PL)
  Receive Date: 20240620
  Receipt Date: 20240620
  Transmission Date: 20240716
  Serious: Yes (Other)
  Sender: FDA-Public Use
  Company Number: None

PATIENT
  Age: 81 Year
  Sex: Female
  Weight: 77 kg

DRUGS (5)
  1. BEVACIZUMAB [Suspect]
     Active Substance: BEVACIZUMAB
     Indication: Colon cancer
     Dosage: 770 MG
     Route: 042
     Dates: start: 20200729, end: 20200729
  2. FLUOROURACIL [Suspect]
     Active Substance: FLUOROURACIL
     Indication: Colon cancer
     Dosage: 2100 MG
     Route: 042
     Dates: start: 20200729, end: 20200731
  3. FLUOROURACIL [Suspect]
     Active Substance: FLUOROURACIL
     Dosage: 700 MG
     Route: 042
     Dates: start: 20200729, end: 20200731
  4. LEUCOVORIN CALCIUM [Suspect]
     Active Substance: LEUCOVORIN CALCIUM
     Indication: Colon cancer
     Dosage: 350 MG
     Route: 042
     Dates: start: 20200729, end: 20200731
  5. OXALIPLATIN [Suspect]
     Active Substance: OXALIPLATIN
     Indication: Colon cancer
     Dosage: 148.75 MG
     Route: 042
     Dates: start: 20200729, end: 20200729

REACTIONS (2)
  - Malaise [Unknown]
  - Neutropenia [Unknown]

NARRATIVE: CASE EVENT DATE: 20200803
